FAERS Safety Report 4603183-3 (Version None)
Quarter: 2005Q1

REPORT INFORMATION
  Report Type: 
  Country: None (occurrence: None)
  Receive Date: 20050307
  Receipt Date: 20050222
  Transmission Date: 20050727
  Serious: Yes (Death, Other)
  Sender: FDA-Public Use
  Company Number: 2005-02-0004

PATIENT
  Age: 39 Year
  Sex: Female

DRUGS (1)
  1. DIAZOXIDE [Suspect]
     Dosage: UNKNOWN
     Route: 065

REACTIONS (1)
  - METASTATIC NEOPLASM [None]
